FAERS Safety Report 11985288 (Version 1)
Quarter: 2016Q1

REPORT INFORMATION
  Report Type: Spontaneous
  Country: DE (occurrence: DE)
  Receive Date: 20160201
  Receipt Date: 20160201
  Transmission Date: 20160526
  Serious: Yes (Hospitalization)
  Sender: FDA-Public Use
  Company Number: DE-TAKEDA-2016TUS001519

PATIENT
  Sex: Female

DRUGS (3)
  1. ENTYVIO [Suspect]
     Active Substance: VEDOLIZUMAB
     Indication: PRODUCT USED FOR UNKNOWN INDICATION
     Dosage: UNK
     Route: 065
     Dates: start: 20160106
  2. TILIDINE [Concomitant]
     Active Substance: TILIDINE
     Indication: RHEUMATIC DISORDER
     Dosage: UNK
  3. METAMIZOLE [Concomitant]
     Active Substance: METAMIZOLE
     Indication: RHEUMATIC DISORDER
     Dosage: UNK

REACTIONS (6)
  - Diarrhoea [Unknown]
  - Nausea [Unknown]
  - Campylobacter infection [Unknown]
  - Arthralgia [Unknown]
  - Dehydration [Unknown]
  - Pyrexia [Unknown]

NARRATIVE: CASE EVENT DATE: 201601
